FAERS Safety Report 5083084-X (Version None)
Quarter: 2006Q3

REPORT INFORMATION
  Report Type: 
  Country: None (occurrence: None)
  Receive Date: 20060814
  Receipt Date: 20060731
  Transmission Date: 20061208
  Serious: Yes (Other)
  Sender: FDA-Public Use
  Company Number: 2006092988

PATIENT
  Age: 64 Year
  Sex: Female
  Weight: 59 kg

DRUGS (18)
  1. SUTENT [Suspect]
     Indication: RENAL CELL CARCINOMA STAGE UNSPECIFIED
     Dosage: 50 MG, ORAL; 37.5 MG, ORAL; 25 MG, ORAL
     Route: 048
     Dates: start: 20050316, end: 20050718
  2. SUTENT [Suspect]
     Indication: RENAL CELL CARCINOMA STAGE UNSPECIFIED
     Dosage: 50 MG, ORAL; 37.5 MG, ORAL; 25 MG, ORAL
     Route: 048
     Dates: start: 20050719, end: 20060327
  3. SUTENT [Suspect]
     Indication: RENAL CELL CARCINOMA STAGE UNSPECIFIED
     Dosage: 50 MG, ORAL; 37.5 MG, ORAL; 25 MG, ORAL
     Route: 048
     Dates: start: 20060328, end: 20060620
  4. ZOMETA [Concomitant]
  5. ACETAMINOPHEN [Concomitant]
  6. RABEPRAZOLE SODIUM [Concomitant]
  7. ROCGEL (ALUMINIUM OXIDE) [Concomitant]
  8. PRIMPERAN TAB [Concomitant]
  9. ACETAMINOPHEN [Concomitant]
  10. ACETAMINOPHEN AND TRAMADOL HCL [Concomitant]
  11. VOGALENE (METOPIMAZINE) [Concomitant]
  12. ANAUSIN (METOCLOPRAMIDE HYDROCHLORIDE) [Concomitant]
  13. FORLAX (MACROGOL) [Concomitant]
  14. TRIMEBUTINE (TRIMEBUTINE) [Concomitant]
  15. SPECIAFOLDINE (FOLIC ACID) [Concomitant]
  16. FERROUS SULFATE TAB [Concomitant]
  17. BIRODOGYL (METRONIDAZOLE, SPIRAMYCIN) [Concomitant]
  18. NEOSTIGMINE (NEOSTIGMINE) [Concomitant]

REACTIONS (1)
  - BLOOD CREATINE PHOSPHOKINASE INCREASED [None]
